FAERS Safety Report 6141298-1 (Version None)
Quarter: 2009Q1

REPORT INFORMATION
  Report Type: 
  Country: None (occurrence: None)
  Receive Date: 20090331
  Receipt Date: 20090331
  Transmission Date: 20090719
  Serious: Yes (Life-Threatening, Disabling, Other)
  Sender: FDA-Public Use
  Company Number: None

PATIENT
  Age: 51 Year
  Sex: Female
  Weight: 63.5036 kg

DRUGS (1)
  1. LEVAQUIN [Suspect]
     Indication: KIDNEY INFECTION
     Dosage: 500 MG 1 A DAY BUCCAL
     Route: 002
     Dates: start: 20090322, end: 20090322

REACTIONS (18)
  - ACTIVITIES OF DAILY LIVING IMPAIRED [None]
  - AGITATION [None]
  - ANXIETY [None]
  - ARRHYTHMIA [None]
  - ARTHRALGIA [None]
  - DRY MOUTH [None]
  - EXTRASYSTOLES [None]
  - FEELING ABNORMAL [None]
  - IMMOBILE [None]
  - INSOMNIA [None]
  - MYALGIA [None]
  - NERVOUS SYSTEM DISORDER [None]
  - NIGHTMARE [None]
  - PAIN [None]
  - PAIN IN EXTREMITY [None]
  - PALPITATIONS [None]
  - POLLAKIURIA [None]
  - TENDON RUPTURE [None]
